FAERS Safety Report 23080874 (Version 2)
Quarter: 2023Q4

REPORT INFORMATION
  Report Type: Other
  Country: US (occurrence: None)
  Receive Date: 20231018
  Receipt Date: 20231102
  Transmission Date: 20240110
  Serious: Yes (Other)
  Sender: FDA-Public Use
  Company Number: US-ROCHE-2655972

PATIENT
  Age: 83 Year
  Sex: Female

DRUGS (8)
  1. ACTEMRA [Suspect]
     Active Substance: TOCILIZUMAB
     Indication: Giant cell arteritis
     Dosage: INJECT 162MG/0.9ML SUBCUTANEOUSLY EVERY WEEK FOR 90 DAYS
     Route: 058
  2. ACTEMRA [Suspect]
     Active Substance: TOCILIZUMAB
  3. RIVASTIGMINE [Concomitant]
     Active Substance: RIVASTIGMINE
  4. LEXAPRO [Concomitant]
     Active Substance: ESCITALOPRAM OXALATE
     Route: 048
  5. HYDROXYUREA [Concomitant]
     Active Substance: HYDROXYUREA
     Route: 048
  6. LEVOTHYROXINE SODIUM [Concomitant]
     Active Substance: LEVOTHYROXINE SODIUM
  7. ROSUVASTATIN CALCIUM [Concomitant]
     Active Substance: ROSUVASTATIN CALCIUM
  8. MIRTAZAPINE [Concomitant]
     Active Substance: MIRTAZAPINE
     Route: 048

REACTIONS (10)
  - Dementia Alzheimer^s type [Unknown]
  - Blindness unilateral [Unknown]
  - Deafness [Unknown]
  - Cerebrovascular accident [Unknown]
  - Cataract [Unknown]
  - Dementia [Unknown]
  - Vision blurred [Unknown]
  - Fall [Unknown]
  - Rash [Unknown]
  - Visual impairment [Unknown]
